FAERS Safety Report 17233302 (Version 1)
Quarter: 2020Q1

REPORT INFORMATION
  Report Type: Spontaneous
  Country: US (occurrence: US)
  Receive Date: 20200104
  Receipt Date: 20200104
  Transmission Date: 20200409
  Serious: No
  Sender: FDA-Public Use
  Company Number: US-TEVA-2019-US-1162108

PATIENT
  Age: 69 Year
  Sex: Female

DRUGS (5)
  1. MOXIFLOXACIN. [Suspect]
     Active Substance: MOXIFLOXACIN
     Route: 065
  2. FLUCONAZOLE. [Concomitant]
     Active Substance: FLUCONAZOLE
  3. CEFDINIR. [Concomitant]
     Active Substance: CEFDINIR
  4. KETOCONAZOLE. [Concomitant]
     Active Substance: KETOCONAZOLE
  5. NYSTATIN. [Concomitant]
     Active Substance: NYSTATIN

REACTIONS (2)
  - Feeling abnormal [Unknown]
  - Reaction to excipient [Unknown]
